FAERS Safety Report 19459504 (Version 1)
Quarter: 2021Q2

REPORT INFORMATION
  Report Type: Spontaneous
  Country: US (occurrence: US)
  Receive Date: 20210624
  Receipt Date: 20210624
  Transmission Date: 20210717
  Serious: Yes (Hospitalization, Other)
  Sender: FDA-Public Use
  Company Number: US-TEVA-2021-US-1925223

PATIENT
  Age: 30 Year
  Sex: Male

DRUGS (3)
  1. MESALAMINE. [Suspect]
     Active Substance: MESALAMINE
     Indication: COLITIS ULCERATIVE
     Route: 065
     Dates: start: 2018, end: 2018
  2. INFLIXIMAB [Suspect]
     Active Substance: INFLIXIMAB
     Indication: COLITIS ULCERATIVE
     Route: 065
     Dates: start: 201901, end: 20190916
  3. PREDNISONE. [Suspect]
     Active Substance: PREDNISONE
     Indication: COLITIS ULCERATIVE
     Dosage: SCHEDULED TO BE A 5?WEEK COURSE
     Route: 065
     Dates: start: 2018, end: 2018

REACTIONS (8)
  - Irritability [Unknown]
  - Autoimmune hepatitis [Recovered/Resolved]
  - Pancreatitis [Unknown]
  - Insomnia [Unknown]
  - Drug ineffective [Unknown]
  - Mood swings [Unknown]
  - Restlessness [Unknown]
  - Weight increased [Unknown]

NARRATIVE: CASE EVENT DATE: 2018
